FAERS Safety Report 4317563-7 (Version None)
Quarter: 2004Q1

REPORT INFORMATION
  Report Type: 
  Country: None (occurrence: None)
  Receive Date: 20040312
  Receipt Date: 20040304
  Transmission Date: 20041129
  Serious: Yes (Hospitalization)
  Sender: FDA-Public Use
  Company Number: NL-JNJFOC-20040105924

PATIENT
  Age: 77 Year
  Sex: Female
  Weight: 70 kg

DRUGS (11)
  1. ITRACONAZOLE [Suspect]
     Indication: ASPERGILLOSIS
     Dosage: 200 MG, 2 IN 1 DAY, ORAL
     Route: 048
     Dates: end: 20040113
  2. ITRACONAZOLE [Suspect]
     Indication: ASPERGILLOSIS
     Dosage: 200 MG, 2 IN 1 DAY, ORAL
     Route: 048
     Dates: start: 20031222
  3. ADALAT [Concomitant]
  4. ZESTRIL [Concomitant]
  5. FLUIMICIL (ACETYLCYSTEINE) [Concomitant]
  6. PANTOZOL (PANTOPRAZOLE SODIUM) [Concomitant]
  7. PREDNISONE [Concomitant]
  8. COMBIVENT [Concomitant]
  9. INHIBIN (HYDROQUININE HYDROBROMIDE) [Concomitant]
  10. ULCOGANT (SUCRALFATE) [Concomitant]
  11. FUROSEMIDE [Concomitant]

REACTIONS (5)
  - CAPILLARY LEAK SYNDROME [None]
  - HYPERTENSION [None]
  - OEDEMA PERIPHERAL [None]
  - THROMBOCYTOPENIA [None]
  - WEIGHT INCREASED [None]
